FAERS Safety Report 12531732 (Version 1)
Quarter: 2016Q3

REPORT INFORMATION
  Report Type: Spontaneous
  Country: US (occurrence: US)
  Receive Date: 20160706
  Receipt Date: 20160706
  Transmission Date: 20161109
  Serious: No
  Sender: FDA-Public Use
  Company Number: US-PFIZER INC-2016291941

PATIENT
  Age: 49 Year
  Sex: Female
  Weight: 90.72 kg

DRUGS (23)
  1. XELJANZ [Suspect]
     Active Substance: TOFACITINIB CITRATE
     Indication: ARTHRITIS
     Dosage: 11 MG, 1X/DAY
     Route: 048
     Dates: start: 20160510, end: 20160513
  2. OXYCODONE [Concomitant]
     Active Substance: OXYCODONE
     Indication: ARTHRITIS
     Dosage: EVERY 4 HOURS OR 2 EVERY 6 HOURS AS NEEDED
  3. ESTRADIOL. [Concomitant]
     Active Substance: ESTRADIOL
     Indication: BLOOD OESTROGEN ABNORMAL
     Dosage: 2 DF, WEEKLY, 0.5MG PATCH 2 PATCHES A WEEK
  4. RISPERIDONE. [Concomitant]
     Active Substance: RISPERIDONE
     Indication: SLEEP DISORDER
     Dosage: 1 MG, AS NEEDED, 1MG ONE AT BEDTIME AS NEED
  5. TOPIRAMATE. [Concomitant]
     Active Substance: TOPIRAMATE
     Indication: DEPRESSION
     Dosage: 50 MG, 3X/DAY, 100MG 0.5 TABLET THREE TIMES A DAY
     Dates: start: 2000
  6. TRIAMTERENE. [Concomitant]
     Active Substance: TRIAMTERENE
     Indication: HYPERTENSION
     Dosage: 37.5 MG, 1X/DAY
  7. SEROQUEL [Concomitant]
     Active Substance: QUETIAPINE FUMARATE
     Indication: SLEEP DISORDER
     Dosage: 50 MG, UP TO 2 TABLETS AT BEDTIME
  8. ALBUTEROL. [Concomitant]
     Active Substance: ALBUTEROL
     Indication: ASTHMA
     Dosage: UNK, AS NEEDED
     Dates: start: 2000
  9. VITAMIN B [Concomitant]
     Active Substance: VITAMIN B
     Dosage: 500 MG, 1X/DAY
  10. FAMOTIDINE. [Concomitant]
     Active Substance: FAMOTIDINE
     Indication: ABDOMINAL DISCOMFORT
     Dosage: 20 MG, 2X/DAY
  11. CITALOPRAM [Concomitant]
     Active Substance: CITALOPRAM HYDROBROMIDE
     Indication: DEPRESSION
     Dosage: 20 MG, 1X/DAY
     Dates: start: 2000
  12. SIMVASTATIN. [Concomitant]
     Active Substance: SIMVASTATIN
     Indication: BLOOD CHOLESTEROL ABNORMAL
     Dosage: 10 MG, 1X/DAY
     Dates: start: 2000
  13. TRAZODONE [Concomitant]
     Active Substance: TRAZODONE HYDROCHLORIDE
     Indication: SLEEP DISORDER
     Dosage: 50 MG, AS NEEDED, UP TO 2 TABLETS AT BEDTIME AS NEEDED
  14. XELJANZ [Suspect]
     Active Substance: TOFACITINIB CITRATE
     Dosage: UNK
     Dates: end: 20160603
  15. DICLOFENAC SODIUM. [Concomitant]
     Active Substance: DICLOFENAC SODIUM
     Indication: ARTHRITIS
     Dosage: 75 MG, 2X/DAY
  16. XELJANZ [Suspect]
     Active Substance: TOFACITINIB CITRATE
     Dosage: UNK
     Dates: start: 20160518
  17. VITAMIN D /00107901/ [Concomitant]
     Active Substance: ERGOCALCIFEROL
     Indication: ARTHRITIS
     Dosage: 5000 IU, 1X/DAY
  18. PIOGLITAZONE. [Concomitant]
     Active Substance: PIOGLITAZONE
     Indication: DIABETES MELLITUS
     Dosage: 15 MG, 1X/DAY
  19. METFORMIN [Concomitant]
     Active Substance: METFORMIN HYDROCHLORIDE
     Indication: DIABETES MELLITUS
     Dosage: 1000 MG, 2X/DAY
     Dates: start: 200005
  20. TIZANIDINE. [Concomitant]
     Active Substance: TIZANIDINE
     Indication: ARTHRITIS
     Dosage: 20 MG, 3X/DAY
  21. MORPHINE SULFATE. [Concomitant]
     Active Substance: MORPHINE SULFATE
     Indication: ARTHRITIS
     Dosage: 60 MG, 3X/DAY
  22. ALPRAZOLAM. [Concomitant]
     Active Substance: ALPRAZOLAM
     Indication: PANIC ATTACK
     Dosage: 0.5 MG, AS NEEDED, 3 OR 4 A DAY AS NEEDED
     Dates: start: 2000
  23. POLYETHGLYCOL [Concomitant]
     Indication: CONSTIPATION
     Dosage: 527 G, AS NEEDED, POWDER 527GRAMS USES AS NEEDED

REACTIONS (5)
  - Weight increased [Recovering/Resolving]
  - Joint swelling [Recovering/Resolving]
  - Tongue discomfort [Recovered/Resolved]
  - Localised infection [Recovered/Resolved]
  - Peripheral swelling [Recovering/Resolving]

NARRATIVE: CASE EVENT DATE: 20160513
